FAERS Safety Report 6880777-6 (Version None)
Quarter: 2010Q3

REPORT INFORMATION
  Report Type: 
  Country: None (occurrence: None)
  Receive Date: 20100728
  Receipt Date: 20100716
  Transmission Date: 20110219
  Serious: Yes (Death, Other)
  Sender: FDA-Public Use
  Company Number: PL-GENZYME-THYM-1001685

PATIENT
  Age: 29 Year
  Sex: Female
  Weight: 80 kg

DRUGS (7)
  1. THYMOGLOBULIN [Suspect]
     Indication: APLASTIC ANAEMIA
     Dosage: UNK MG, QD
     Route: 042
  2. CYCLOSPORINE [Concomitant]
     Indication: APLASTIC ANAEMIA
     Dosage: 125 MG, BID
  3. METHYLPREDNISOLONE ACETATE [Concomitant]
     Indication: APLASTIC ANAEMIA
     Dosage: 80 MG, QD
     Route: 042
  4. METHYLPREDNISOLONE ACETATE [Concomitant]
     Dosage: 40 MG, QD
  5. NEUPOGEN [Concomitant]
     Indication: LEUKOPENIA
     Dosage: 5 MCG/KG, QD
     Route: 058
  6. PREDNISONE [Concomitant]
     Indication: APLASTIC ANAEMIA
     Dosage: 0.5 MG/KG, UNK
  7. GRANULOCYTE COLONY STIMULATING FACTOR [Concomitant]
     Indication: APLASTIC ANAEMIA
     Dosage: 5 MCG/KG, QD
     Route: 058

REACTIONS (5)
  - DIARRHOEA [None]
  - FEBRILE NEUTROPENIA [None]
  - GINGIVAL HYPERTROPHY [None]
  - PULMONARY OEDEMA [None]
  - STOMATITIS [None]
